FAERS Safety Report 18138728 (Version 1)
Quarter: 2020Q3

REPORT INFORMATION
  Report Type: Spontaneous
  Country: US (occurrence: US)
  Receive Date: 20200811
  Receipt Date: 20200811
  Transmission Date: 20201103
  Serious: No
  Sender: FDA-Public Use
  Company Number: None

PATIENT
  Age: 62 Year
  Sex: Female
  Weight: 49.05 kg

DRUGS (4)
  1. FLUOXETINE [Concomitant]
     Active Substance: FLUOXETINE HYDROCHLORIDE
  2. DICLOFENAC SODIUM 50MG TAB PAC [Suspect]
     Active Substance: DICLOFENAC SODIUM
     Indication: BACK PAIN
     Route: 048
     Dates: start: 20200808, end: 20200809
  3. OLANZAPINE. [Concomitant]
     Active Substance: OLANZAPINE
  4. LAMOTRIGINE. [Concomitant]
     Active Substance: LAMOTRIGINE

REACTIONS (7)
  - Confusional state [None]
  - Drug ineffective [None]
  - Mood swings [None]
  - Agitation [None]
  - Crying [None]
  - Thinking abnormal [None]
  - Conversion disorder [None]

NARRATIVE: CASE EVENT DATE: 20200810
